FAERS Safety Report 25820828 (Version 1)
Quarter: 2025Q3

REPORT INFORMATION
  Report Type: Spontaneous
  Country: US (occurrence: US)
  Receive Date: 20250919
  Receipt Date: 20250919
  Transmission Date: 20251020
  Serious: Yes (Hospitalization, Other)
  Sender: AUROBINDO
  Company Number: US-AUROBINDO-AUR-APL-2025-046776

PATIENT
  Age: 67 Year
  Sex: Female

DRUGS (6)
  1. GLYCOPYRROLATE [Suspect]
     Active Substance: GLYCOPYRROLATE
     Indication: Bradycardia
     Route: 042
  2. ENOXAPARIN [Concomitant]
     Active Substance: ENOXAPARIN
     Indication: Anticoagulant therapy
     Route: 058
  3. NOREPINEPHRINE [Concomitant]
     Active Substance: NOREPINEPHRINE
     Indication: Hypotension
     Route: 065
  4. TRANEXAMIC ACID [Concomitant]
     Active Substance: TRANEXAMIC ACID
     Indication: Product used for unknown indication
     Route: 065
  5. CLOPIDOGREL [Concomitant]
     Active Substance: CLOPIDOGREL BISULFATE
     Indication: Sinus bradycardia
     Route: 065
  6. BIVALIRUDIN [Concomitant]
     Active Substance: BIVALIRUDIN
     Indication: Sinus bradycardia
     Route: 065

REACTIONS (1)
  - Drug ineffective [Unknown]
